FAERS Safety Report 4847775-5 (Version None)
Quarter: 2005Q4

REPORT INFORMATION
  Report Type: 
  Country: None (occurrence: None)
  Receive Date: 20051207
  Receipt Date: 20051005
  Transmission Date: 20060501
  Serious: Yes (Hospitalization)
  Sender: FDA-Public Use
  Company Number: US-MERCK-0510USA04751

PATIENT
  Age: 65 Year
  Sex: Female
  Weight: 43 kg

DRUGS (6)
  1. VIOXX [Suspect]
     Indication: RHEUMATOID ARTHRITIS
     Route: 048
     Dates: start: 20040119, end: 20040527
  2. ZOCOR [Concomitant]
     Route: 065
  3. MEDROL [Concomitant]
     Route: 065
  4. ARAVA [Concomitant]
     Indication: RHEUMATOID ARTHRITIS
     Route: 065
     Dates: end: 20040527
  5. PLETAL [Concomitant]
     Indication: PERIPHERAL VASCULAR DISORDER
     Route: 065
  6. ATENOLOL [Concomitant]
     Indication: BLOOD PRESSURE
     Route: 065

REACTIONS (11)
  - ANAEMIA [None]
  - ASTHENIA [None]
  - CARDIAC FAILURE CONGESTIVE [None]
  - COLONIC POLYP [None]
  - DUODENAL ULCER [None]
  - DYSPHAGIA [None]
  - HYPOKALAEMIA [None]
  - HYPONATRAEMIA [None]
  - TACHYCARDIA [None]
  - VAGINAL ULCERATION [None]
  - WEIGHT DECREASED [None]
